FAERS Safety Report 6116052-7 (Version None)
Quarter: 2009Q1

REPORT INFORMATION
  Report Type: 
  Country: None (occurrence: None)
  Receive Date: 20090314
  Receipt Date: 20090102
  Transmission Date: 20090719
  Serious: No
  Sender: FDA-Public Use
  Company Number: US-ABBOTT-08P-163-0492995-00

PATIENT
  Sex: Female
  Weight: 53.572 kg

DRUGS (3)
  1. HUMIRA [Suspect]
     Indication: CROHN'S DISEASE
     Dates: start: 20080801
  2. ENTOCORT EC [Concomitant]
     Indication: CROHN'S DISEASE
  3. MAGNESIUM SULFATE [Concomitant]
     Indication: MAGNESIUM DEFICIENCY
     Route: 042

REACTIONS (5)
  - FEELING ABNORMAL [None]
  - HYPERTENSION [None]
  - INJECTION SITE ERYTHEMA [None]
  - INJECTION SITE PAIN [None]
  - INJECTION SITE SWELLING [None]
